FAERS Safety Report 20885894 (Version 2)
Quarter: 2022Q3

REPORT INFORMATION
  Report Type: Report from Study
  Country: US (occurrence: US)
  Receive Date: 20220527
  Receipt Date: 20220817
  Transmission Date: 20221026
  Serious: No
  Sender: FDA-Public Use
  Company Number: US-NOVARTISTESTPH-NVSC2022US121911

PATIENT
  Sex: Male

DRUGS (1)
  1. COSENTYX [Suspect]
     Active Substance: SECUKINUMAB
     Indication: Psoriasis
     Dosage: 300 MG (ONE SINGLE DOSE)
     Route: 058

REACTIONS (3)
  - Peripheral swelling [Unknown]
  - Skin plaque [Unknown]
  - Inappropriate schedule of product administration [Unknown]
